FAERS Safety Report 9831706 (Version 2)
Quarter: 2014Q1

REPORT INFORMATION
  Report Type: Spontaneous
  Country: CA (occurrence: CA)
  Receive Date: 20140121
  Receipt Date: 20140218
  Transmission Date: 20141002
  Serious: Yes (Death, Hospitalization)
  Sender: FDA-Public Use
  Company Number: CA-AMGEN-CANSP2014003493

PATIENT
  Age: 86 Year
  Sex: Female
  Weight: 50.5 kg

DRUGS (1)
  1. PROLIA [Suspect]
     Indication: OSTEOPOROSIS POSTMENOPAUSAL
     Dosage: 60 MG, UNK
     Route: 065
     Dates: start: 20130109, end: 20130729

REACTIONS (3)
  - Clostridial infection [Fatal]
  - Endocarditis [Fatal]
  - Hospitalisation [Unknown]
